FAERS Safety Report 19492645 (Version 3)
Quarter: 2021Q3

REPORT INFORMATION
  Report Type: Spontaneous
  Country: MX (occurrence: MX)
  Receive Date: 20210705
  Receipt Date: 20210816
  Transmission Date: 20211014
  Serious: Yes (Hospitalization, Other)
  Sender: FDA-Public Use
  Company Number: MX-ACCORD-229896

PATIENT
  Age: 37 Year
  Sex: Male

DRUGS (4)
  1. QUETIAPINE. [Suspect]
     Active Substance: QUETIAPINE
     Indication: PSYCHOMOTOR HYPERACTIVITY
     Dates: start: 2017
  2. LORAZEPAM. [Concomitant]
     Active Substance: LORAZEPAM
     Indication: CATATONIA
     Dates: start: 2017
  3. CLONAZEPAM. [Concomitant]
     Active Substance: CLONAZEPAM
     Dates: start: 2017
  4. RISPERIDONE. [Concomitant]
     Active Substance: RISPERIDONE
     Dates: start: 2017

REACTIONS (2)
  - Catatonia [Recovered/Resolved]
  - Condition aggravated [Recovered/Resolved]

NARRATIVE: CASE EVENT DATE: 2017
